FAERS Safety Report 21701050 (Version 1)
Quarter: 2022Q4

REPORT INFORMATION
  Report Type: Spontaneous
  Country: US (occurrence: None)
  Receive Date: 20221207
  Receipt Date: 20221207
  Transmission Date: 20230113
  Serious: Yes (Hospitalization)
  Sender: FDA-Public Use
  Company Number: None

PATIENT
  Age: 78 Year
  Sex: Male
  Weight: 86 kg

DRUGS (1)
  1. EMPAGLIFLOZIN [Suspect]
     Active Substance: EMPAGLIFLOZIN
     Indication: Diabetes mellitus
     Dosage: FREQUENCY : DAILY;?
     Route: 048
     Dates: start: 20211229, end: 20221114

REACTIONS (7)
  - Mental status changes [None]
  - Nausea [None]
  - Vomiting [None]
  - Lactic acidosis [None]
  - Diabetic ketoacidosis [None]
  - Dehydration [None]
  - Gastroenteritis [None]

NARRATIVE: CASE EVENT DATE: 20221112
